FAERS Safety Report 8094457-5 (Version None)
Quarter: 2012Q1

REPORT INFORMATION
  Report Type: 
  Country: None (occurrence: None)
  Receive Date: 20120130
  Receipt Date: 20120118
  Transmission Date: 20120608
  Serious: Yes (Other)
  Sender: FDA-Public Use
  Company Number: CN-JNJFOC-20120107492

PATIENT
  Age: 40 Year
  Sex: Male

DRUGS (3)
  1. REMICADE [Suspect]
     Dosage: 4 TIMES
     Route: 042
     Dates: start: 20100101
  2. REMICADE [Suspect]
     Indication: PSORIATIC ARTHROPATHY
     Route: 042
     Dates: start: 20111201
  3. REMICADE [Suspect]
     Route: 042
     Dates: start: 20120118, end: 20120118

REACTIONS (3)
  - ANGINA PECTORIS [None]
  - INFUSION RELATED REACTION [None]
  - URTICARIA [None]
